FAERS Safety Report 5531375-8 (Version None)
Quarter: 2007Q4

REPORT INFORMATION
  Report Type: 
  Country: None (occurrence: None)
  Receive Date: 20071128
  Receipt Date: 20071114
  Transmission Date: 20080405
  Serious: Yes (Death)
  Sender: FDA-Public Use
  Company Number: 2007US002855

PATIENT
  Age: 85 Year
  Sex: Male

DRUGS (1)
  1. AMBISOME [Suspect]
     Indication: FUNGAL INFECTION
     Dosage: 100 MG, UID/QD, IV NOS
     Route: 042
     Dates: start: 20071024, end: 20071024

REACTIONS (1)
  - CARDIAC FAILURE [None]
